FAERS Safety Report 7506093-7 (Version None)
Quarter: 2011Q2

REPORT INFORMATION
  Report Type: 
  Country: None (occurrence: None)
  Receive Date: 20110520
  Receipt Date: 20110510
  Transmission Date: 20111010
  Serious: Yes (Hospitalization)
  Sender: FDA-Public Use
  Company Number: B0719564A

PATIENT
  Sex: Female

DRUGS (3)
  1. ZINACEF [Suspect]
     Dosage: 250 MG /TWICE PER DAY /
  2. PROPRANOLOL HYDROCHLORIDE [Suspect]
     Indication: HYPERTHYROIDISM
     Dosage: 40 HREE TIMES PER DAY /
  3. METHIMAZOLE [Suspect]

REACTIONS (7)
  - FLUID OVERLOAD [None]
  - CARDIAC FAILURE HIGH OUTPUT [None]
  - DYSPNOEA [None]
  - PLEURAL EFFUSION [None]
  - THYROTOXIC CRISIS [None]
  - COMPUTERISED TOMOGRAM ABNORMAL [None]
  - CIRCULATORY COLLAPSE [None]
